FAERS Safety Report 7375676-X (Version None)
Quarter: 2011Q1

REPORT INFORMATION
  Report Type: 
  Country: None (occurrence: None)
  Receive Date: 20110325
  Receipt Date: 20110316
  Transmission Date: 20110831
  Serious: Yes (Other)
  Sender: FDA-Public Use
  Company Number: FR-JNJFOC-20110307192

PATIENT
  Sex: Male

DRUGS (3)
  1. INTELENCE [Suspect]
     Indication: HIV INFECTION
     Route: 048
     Dates: start: 20101119, end: 20110220
  2. PREZISTA [Suspect]
     Indication: HIV INFECTION
     Route: 048
     Dates: start: 20101119, end: 20110220
  3. ISENTRESS [Suspect]
     Indication: HIV INFECTION
     Route: 048
     Dates: start: 20101119, end: 20110220

REACTIONS (6)
  - ANXIETY DISORDER [None]
  - DEPRESSION [None]
  - DRUG PRESCRIBING ERROR [None]
  - SLEEP DISORDER [None]
  - NIGHTMARE [None]
  - PAIN IN EXTREMITY [None]
